FAERS Safety Report 5842183-2 (Version None)
Quarter: 2008Q3

REPORT INFORMATION
  Report Type: 
  Country: None (occurrence: None)
  Receive Date: 20080731
  Receipt Date: 20080515
  Transmission Date: 20090109
  Serious: No
  Sender: FDA-Public Use
  Company Number: US200805003323

PATIENT
  Age: 61 Year
  Sex: Male
  Weight: 138.3 kg

DRUGS (4)
  1. BYETTA [Suspect]
     Indication: TYPE 2 DIABETES MELLITUS
     Dosage: 5 UG, 2/D, SUBCUTANEOUS
     Route: 058
     Dates: start: 20080515
  2. GLUCOPHAGE /USA/ (METFORMIN HYDROCHLORIDE) [Concomitant]
  3. GLIPIZIDE [Concomitant]
  4. AVANDIA [Concomitant]

REACTIONS (1)
  - BLOOD GLUCOSE DECREASED [None]
